FAERS Safety Report 8787663 (Version 1)
Quarter: 2012Q4

REPORT INFORMATION
  Report Type: 
  Country: US (occurrence: US)
  Receive Date: 20120914
  Receipt Date: 20120914
  Transmission Date: 20130627
  Serious: Yes (Death)
  Sender: FDA-Public Use
  Company Number: US-ROCHE-CID000000002116604

PATIENT
  Sex: Female

DRUGS (7)
  1. TARCEVA [Suspect]
     Indication: GENITAL NEOPLASM MALIGNANT FEMALE
     Route: 065
  2. TARCEVA [Suspect]
     Indication: OFF LABEL USE
  3. AVASTIN [Suspect]
     Indication: GENITAL NEOPLASM MALIGNANT FEMALE
     Route: 065
  4. AVASTIN [Suspect]
     Indication: MALIGNANT NEOPLASM OF UTERINE ADNEXA
  5. AVASTIN [Suspect]
     Indication: OFF LABEL USE
  6. THALIDOMIDE [Concomitant]
     Indication: PRODUCT USED FOR UNKNOWN INDICATION
     Route: 065
  7. ARANESP [Concomitant]
     Indication: PRODUCT USED FOR UNKNOWN INDICATION

REACTIONS (3)
  - Death [Fatal]
  - Disease recurrence [Unknown]
  - Pain [Unknown]
